FAERS Safety Report 24729458 (Version 1)
Quarter: 2024Q4

REPORT INFORMATION
  Report Type: Spontaneous
  Country: US (occurrence: US)
  Receive Date: 20241213
  Receipt Date: 20241213
  Transmission Date: 20250115
  Serious: No
  Sender: ACCORD
  Company Number: US-Accord-420326

PATIENT
  Age: 76 Year
  Sex: Female

DRUGS (12)
  1. LEVOTHYROXINE [Suspect]
     Active Substance: LEVOTHYROXINE
     Indication: Product used for unknown indication
     Dosage: 100 MG IN THE MORNING
     Dates: start: 20240205
  2. SIMVASTATIN [Concomitant]
     Active Substance: SIMVASTATIN
  3. ALPRENOLOL HYDROCHLORIDE [Concomitant]
     Active Substance: ALPRENOLOL HYDROCHLORIDE
  4. CELEBREX [Concomitant]
     Active Substance: CELECOXIB
  5. DAPSONE [Concomitant]
     Active Substance: DAPSONE
  6. ELIQUIS [Concomitant]
     Active Substance: APIXABAN
  7. FUROSEMIDE [Concomitant]
     Active Substance: FUROSEMIDE
  8. METOPROLOL [Concomitant]
     Active Substance: METOPROLOL
  9. ALBUTEROL [Concomitant]
     Active Substance: ALBUTEROL
  10. POTASSIUM CHLORIDE [Concomitant]
     Active Substance: POTASSIUM CHLORIDE
  11. LIOTHYRONINE [Concomitant]
     Active Substance: LIOTHYRONINE
  12. COLCHICINE [Concomitant]
     Active Substance: COLCHICINE
     Indication: Gout
     Dosage: WHEN NEEDED

REACTIONS (5)
  - Fatigue [Unknown]
  - Urticaria [Unknown]
  - Body temperature increased [Unknown]
  - Hyperhidrosis [Unknown]
  - Abdominal pain upper [Unknown]

NARRATIVE: CASE EVENT DATE: 20240201
